FAERS Safety Report 21738374 (Version 1)
Quarter: 2022Q4

REPORT INFORMATION
  Report Type: Spontaneous
  Country: US (occurrence: US)
  Receive Date: 20221216
  Receipt Date: 20221216
  Transmission Date: 20230113
  Serious: No
  Sender: FDA-Public Use
  Company Number: US-AUROBINDO-AUR-APL-2022-034760

PATIENT
  Sex: Female
  Weight: 55.791 kg

DRUGS (1)
  1. BUPIVACAINE HYDROCHLORIDE [Suspect]
     Active Substance: BUPIVACAINE HYDROCHLORIDE
     Indication: Cystitis interstitial
     Dosage: UNK
     Route: 065
     Dates: start: 20220822

REACTIONS (1)
  - Expired product administered [Unknown]
